FAERS Safety Report 8263723-2 (Version None)
Quarter: 2012Q2

REPORT INFORMATION
  Report Type: 
  Country: None (occurrence: None)
  Receive Date: 20120405
  Receipt Date: 20120326
  Transmission Date: 20120825
  Serious: Yes (Hospitalization, Other)
  Sender: FDA-Public Use
  Company Number: CA-ROCHE-1054974

PATIENT
  Sex: Female

DRUGS (8)
  1. ADVAIR DISKUS 100/50 [Concomitant]
  2. CALCIUM CARBONATE [Concomitant]
  3. VITAMIN D2 [Concomitant]
  4. SINGULAIR [Concomitant]
  5. FOSAMAX [Concomitant]
  6. XOLAIR [Suspect]
     Indication: ASTHMA
     Route: 058
     Dates: start: 20110920, end: 20120227
  7. PREDNISONE [Concomitant]
  8. SPIRIVA [Concomitant]

REACTIONS (2)
  - PNEUMONIA [None]
  - INFLUENZA [None]
